FAERS Safety Report 24858712 (Version 1)
Quarter: 2025Q1

REPORT INFORMATION
  Report Type: Spontaneous
  Country: FR (occurrence: FR)
  Receive Date: 20250118
  Receipt Date: 20250118
  Transmission Date: 20250408
  Serious: Yes (Hospitalization, Other)
  Sender: PROVEPHARM
  Company Number: FR-Provepharm-2169278

PATIENT
  Age: 47 Year
  Sex: Male
  Weight: 215 kg

DRUGS (10)
  1. PROVAYBLUE [Suspect]
     Active Substance: METHYLENE BLUE
     Indication: Toxicity to various agents
     Dates: start: 20241116, end: 20241117
  2. OFLOXACIN [Concomitant]
     Active Substance: OFLOXACIN
     Dates: start: 20241115, end: 20241115
  3. CHLORHYDRATE DE BUSPIRONE [Concomitant]
  4. FUROSEMIDE [Suspect]
     Active Substance: FUROSEMIDE
     Dates: start: 20241117, end: 20241118
  5. ARGIPRESSINE (ACETATE D^) [Concomitant]
     Dates: start: 20241115, end: 20241120
  6. INSULIN NOS [Concomitant]
     Active Substance: INSULIN NOS
     Dates: start: 20241115, end: 20241120
  7. CALCIUM GLUCONATE [Concomitant]
     Active Substance: CALCIUM GLUCONATE
     Dates: start: 20241115, end: 20241117
  8. NOREPINEPHRINE BITARTRATE [Suspect]
     Active Substance: NOREPINEPHRINE BITARTRATE
     Dates: start: 20241115, end: 20241121
  9. INTRALIPID [Concomitant]
     Active Substance: EGG PHOSPHOLIPIDS\GLYCERIN\SOYBEAN OIL
     Dates: start: 20241117, end: 20241117
  10. BESILATE D^AMLODIPINE + PERINDOPRIL ARGININE [Concomitant]
     Dates: start: 20241115, end: 20241115

REACTIONS (5)
  - Haemolytic anaemia [Not Recovered/Not Resolved]
  - Overdose [Recovered/Resolved]
  - Product use issue [Recovered/Resolved]
  - Product use in unapproved indication [Recovered/Resolved]
  - Thrombocytopenia [Not Recovered/Not Resolved]

NARRATIVE: CASE EVENT DATE: 20241117
